FAERS Safety Report 12300444 (Version 1)
Quarter: 2016Q2

REPORT INFORMATION
  Report Type: Spontaneous
  Country: US (occurrence: US)
  Receive Date: 20160425
  Receipt Date: 20160425
  Transmission Date: 20160815
  Serious: No
  Sender: FDA-Public Use
  Company Number: US-BAUSCH-BL-2015-025425

PATIENT
  Age: 67 Year
  Sex: Female

DRUGS (6)
  1. ALPRAZOLAM. [Concomitant]
     Active Substance: ALPRAZOLAM
     Indication: PRODUCT USED FOR UNKNOWN INDICATION
     Dosage: AT BEDTIME
     Route: 048
     Dates: start: 2013
  2. TRAMADOL 50MG [Concomitant]
     Active Substance: TRAMADOL
     Indication: PAIN
     Route: 048
     Dates: start: 2013
  3. LEVOBUNOLOL HYDROCHLORIDE OPHTHALMIC SOLUTION USP 0.5% [Suspect]
     Active Substance: LEVOBUNOLOL HYDROCHLORIDE
     Indication: GLAUCOMA
     Route: 047
     Dates: start: 20151021, end: 20151022
  4. SERTRALINE [Concomitant]
     Active Substance: SERTRALINE HYDROCHLORIDE
     Indication: PRODUCT USED FOR UNKNOWN INDICATION
     Route: 048
     Dates: start: 2013
  5. LATANOPROST. [Concomitant]
     Active Substance: LATANOPROST
     Indication: GLAUCOMA
     Dosage: IN BOTH EYES
     Route: 047
     Dates: start: 201505
  6. OXYBUTYIN ER [Concomitant]
     Indication: URINARY INCONTINENCE
     Route: 048
     Dates: start: 2013

REACTIONS (1)
  - Conjunctivitis [Not Recovered/Not Resolved]

NARRATIVE: CASE EVENT DATE: 20151022
